FAERS Safety Report 12247039 (Version 1)
Quarter: 2016Q2

REPORT INFORMATION
  Report Type: Spontaneous
  Country: US (occurrence: US)
  Receive Date: 20160407
  Receipt Date: 20160407
  Transmission Date: 20160815
  Serious: Yes (Other)
  Sender: FDA-Public Use
  Company Number: US-BAYER-2016-066065

PATIENT
  Age: 70 Year
  Sex: Female
  Weight: 66.21 kg

DRUGS (7)
  1. AFRIN ORIGINAL [Suspect]
     Active Substance: OXYMETAZOLINE HYDROCHLORIDE
     Indication: NASAL CONGESTION
  2. VITAMIN D3 [Concomitant]
     Active Substance: CHOLECALCIFEROL
  3. ATORVASTATIN [Concomitant]
     Active Substance: ATORVASTATIN
  4. CENTRUM SILVER [Concomitant]
     Active Substance: MINERALS\VITAMINS
  5. COQ10 [Concomitant]
     Active Substance: UBIDECARENONE
  6. FISH OIL [Concomitant]
     Active Substance: FISH OIL
  7. AFRIN SEVERE CONGESTION [Suspect]
     Active Substance: OXYMETAZOLINE HYDROCHLORIDE
     Indication: NASAL CONGESTION

REACTIONS (6)
  - Product use issue [None]
  - Rebound effect [None]
  - Drug dependence [Not Recovered/Not Resolved]
  - Overdose [None]
  - Expired product administered [None]
  - Drug ineffective [None]
